FAERS Safety Report 6827904-4 (Version None)
Quarter: 2010Q3

REPORT INFORMATION
  Report Type: 
  Country: None (occurrence: None)
  Receive Date: 20100708
  Receipt Date: 20100708
  Transmission Date: 20110219
  Serious: Yes (Other)
  Sender: FDA-Public Use
  Company Number: None

PATIENT
  Age: 63 Year
  Sex: Female
  Weight: 131.5431 kg

DRUGS (1)
  1. CYMBALTA [Suspect]
     Indication: ANALGESIC THERAPY
     Dosage: 1 DA DAILY PO
     Route: 048
     Dates: start: 20090203, end: 20100531

REACTIONS (1)
  - DYSKINESIA [None]
